FAERS Safety Report 8997577 (Version 1)
Quarter: 2013Q1

REPORT INFORMATION
  Report Type: Spontaneous
  Country: US (occurrence: US)
  Receive Date: 20130104
  Receipt Date: 20130104
  Transmission Date: 20140127
  Serious: Yes (Hospitalization, Other)
  Sender: FDA-Public Use
  Company Number: US-009507513-00040679

PATIENT
  Age: 2 None
  Sex: Female

DRUGS (3)
  1. SINGULAIR [Suspect]
     Indication: ASTHMA
     Dosage: 5 MG, QD
     Route: 048
     Dates: start: 20000303, end: 20000304
  2. ALBUTEROL [Concomitant]
  3. INTAL [Concomitant]

REACTIONS (5)
  - Asthma [Recovered/Resolved]
  - Hypersensitivity [Recovered/Resolved]
  - Lung infiltration [Recovered/Resolved]
  - Face oedema [Unknown]
  - Bronchospasm [Unknown]
